FAERS Safety Report 14313043 (Version 1)
Quarter: 2017Q4

REPORT INFORMATION
  Report Type: Spontaneous
  Country: IT (occurrence: IT)
  Receive Date: 20171221
  Receipt Date: 20171221
  Transmission Date: 20180321
  Serious: Yes (Other)
  Sender: FDA-Public Use
  Company Number: IT-CIPLA LTD.-2017IT23762

PATIENT

DRUGS (7)
  1. AKINETON [Suspect]
     Active Substance: BIPERIDEN HYDROCHLORIDE
     Dosage: 10 DF, IN TOTAL
     Route: 048
     Dates: start: 20171112, end: 20171112
  2. QUETIAPINA ACCORD 200MG COMPRESSE A RILASCIO PROLUNGATO [Suspect]
     Active Substance: QUETIAPINE FUMARATE
     Dosage: 8 DF, IN TOTAL
     Route: 048
     Dates: start: 20171112, end: 20171112
  3. LORMETAZEPAM [Suspect]
     Active Substance: LORMETAZEPAM
     Dosage: 6 DF, IN TOTAL
     Route: 048
     Dates: start: 20171112, end: 20171112
  4. RISPERIDONE. [Suspect]
     Active Substance: RISPERIDONE
     Dosage: 3 DF, IN TOTAL
     Route: 048
     Dates: start: 20171112, end: 20171112
  5. HALDOL [Suspect]
     Active Substance: HALOPERIDOL
     Dosage: 4 DF, IN TOTAL
     Route: 048
     Dates: start: 20171112, end: 20171112
  6. LORAZEPAM. [Suspect]
     Active Substance: LORAZEPAM
     Dosage: 10 DF, IN TOTAL
     Route: 048
     Dates: start: 20171112, end: 20171112
  7. LANSOPRAZOLE. [Suspect]
     Active Substance: LANSOPRAZOLE
     Dosage: 4 DF, IN TOTAL
     Route: 048
     Dates: start: 20171112, end: 20171112

REACTIONS (1)
  - Self-injurious ideation [Unknown]

NARRATIVE: CASE EVENT DATE: 20171112
